FAERS Safety Report 8056518-6 (Version None)
Quarter: 2012Q1

REPORT INFORMATION
  Report Type: 
  Country: None (occurrence: None)
  Receive Date: 20120119
  Receipt Date: 20120113
  Transmission Date: 20120608
  Serious: Yes (Hospitalization)
  Sender: FDA-Public Use
  Company Number: JP-ELI_LILLY_AND_COMPANY-JP201110005074

PATIENT
  Age: 74 Year
  Sex: Female
  Weight: 49.5 kg

DRUGS (7)
  1. GRANISETRON [Concomitant]
     Indication: PROPHYLAXIS OF NAUSEA AND VOMITING
     Dosage: 3 MG, UNK
     Route: 042
     Dates: start: 20110926
  2. ALIMTA [Suspect]
     Dosage: 600 MG, UNK
     Route: 042
     Dates: start: 20110926
  3. FOLIC ACID [Concomitant]
  4. VITAMIN B-12 [Concomitant]
  5. ALIMTA [Suspect]
     Indication: LUNG ADENOCARCINOMA STAGE IV
     Dosage: 750 MG, UNK
     Route: 042
     Dates: start: 20110829
  6. ZOMETA [Concomitant]
     Indication: METASTASES TO BONE
     Dosage: 4 MG, UNK
     Route: 042
     Dates: start: 20110926
  7. DECADRON [Concomitant]
     Indication: PROPHYLAXIS OF NAUSEA AND VOMITING
     Dosage: 2 MG, UNK
     Route: 042
     Dates: start: 20110926

REACTIONS (6)
  - HYPERGLYCAEMIA [None]
  - PYREXIA [None]
  - DECREASED APPETITE [None]
  - OEDEMA [None]
  - BONE MARROW FAILURE [None]
  - RASH [None]
